FAERS Safety Report 7179796-4 (Version None)
Quarter: 2010Q4

REPORT INFORMATION
  Report Type: 
  Country: None (occurrence: None)
  Receive Date: 20101221
  Receipt Date: 20101217
  Transmission Date: 20110411
  Serious: Yes (Life-Threatening, Hospitalization)
  Sender: FDA-Public Use
  Company Number: DE-ROCHE-749113

PATIENT
  Age: 56 Year
  Sex: Female
  Weight: 71 kg

DRUGS (1)
  1. ROCEPHIN [Suspect]
     Dosage: FORMULATION: INFUSION, BREAK ON 13 OCTOBER 2010
     Route: 042
     Dates: start: 20101007, end: 20101014

REACTIONS (1)
  - RENAL FAILURE ACUTE [None]
